FAERS Safety Report 7340616-6 (Version None)
Quarter: 2011Q1

REPORT INFORMATION
  Report Type: 
  Country: None (occurrence: None)
  Receive Date: 20110301
  Receipt Date: 20110214
  Transmission Date: 20110831
  Serious: Yes (Hospitalization)
  Sender: FDA-Public Use
  Company Number: 2011S1000119

PATIENT
  Sex: Female

DRUGS (5)
  1. DIGOXIN [Concomitant]
  2. DARVOCET-N 50 [Suspect]
     Indication: BACK PAIN
     Dosage: ;PRN; PO
     Route: 048
     Dates: end: 20100101
  3. DARVOCET-N 50 [Suspect]
     Indication: THERMAL BURN
     Dosage: ;PRN; PO
     Route: 048
     Dates: end: 20100101
  4. CORED [Concomitant]
  5. BENICAR [Concomitant]

REACTIONS (6)
  - FATIGUE [None]
  - MEDICAL DEVICE COMPLICATION [None]
  - EJECTION FRACTION DECREASED [None]
  - DYSPNOEA [None]
  - HYPOAESTHESIA [None]
  - ABDOMINAL PAIN UPPER [None]
